FAERS Safety Report 13840808 (Version 3)
Quarter: 2017Q4

REPORT INFORMATION
  Report Type: Spontaneous
  Country: JP (occurrence: JP)
  Receive Date: 20170807
  Receipt Date: 20171010
  Transmission Date: 20180320
  Serious: Yes (Life-Threatening)
  Sender: FDA-Public Use
  Company Number: JP-JNJFOC-20170804550

PATIENT
  Age: 66 Year
  Sex: Female

DRUGS (2)
  1. TRAMAL [Suspect]
     Active Substance: TRAMADOL
     Indication: LUMBAR SPINAL STENOSIS
     Route: 048
     Dates: start: 20160630, end: 20160801
  2. LYRICA [Suspect]
     Active Substance: PREGABALIN
     Indication: PRODUCT USED FOR UNKNOWN INDICATION
     Route: 065
     Dates: start: 20160630

REACTIONS (1)
  - Coma hepatic [Recovered/Resolved]

NARRATIVE: CASE EVENT DATE: 20160722
